FAERS Safety Report 20129834 (Version 1)
Quarter: 2021Q4

REPORT INFORMATION
  Report Type: Spontaneous
  Country: US (occurrence: US)
  Receive Date: 20211130
  Receipt Date: 20211130
  Transmission Date: 20220303
  Serious: Yes (Hospitalization)
  Sender: FDA-Public Use
  Company Number: US-ELI_LILLY_AND_COMPANY-US202111007983

PATIENT
  Age: 68 Year
  Sex: Female

DRUGS (4)
  1. HUMALOG [Suspect]
     Active Substance: INSULIN LISPRO
     Indication: Product used for unknown indication
     Dosage: UNK UNK, UNKNOWN
     Route: 065
  2. HUMALOG [Suspect]
     Active Substance: INSULIN LISPRO
     Indication: Product used for unknown indication
     Dosage: UNK UNK, TID
     Route: 065
  3. HUMALOG [Suspect]
     Active Substance: INSULIN LISPRO
     Dosage: UNK UNK, TID
     Route: 065
  4. LANTUS [Concomitant]
     Active Substance: INSULIN GLARGINE
     Indication: Product used for unknown indication
     Dosage: UNK UNK, DAILY (NIGHT)
     Route: 065

REACTIONS (9)
  - Sepsis [Unknown]
  - Fall [Unknown]
  - Gait disturbance [Unknown]
  - Tendon injury [Unknown]
  - Clumsiness [Unknown]
  - Limb injury [Unknown]
  - Limb discomfort [Unknown]
  - Balance disorder [Unknown]
  - Dysstasia [Unknown]

NARRATIVE: CASE EVENT DATE: 20210401
